FAERS Safety Report 25962261 (Version 1)
Quarter: 2025Q4

REPORT INFORMATION
  Report Type: Spontaneous
  Country: CN (occurrence: CN)
  Receive Date: 20251027
  Receipt Date: 20251027
  Transmission Date: 20260118
  Serious: Yes (Hospitalization)
  Sender: ROCHE
  Company Number: CN-ROCHE-10000416241

PATIENT
  Age: 68 Year
  Sex: Female

DRUGS (4)
  1. BEVACIZUMAB [Suspect]
     Active Substance: BEVACIZUMAB
     Indication: Ovarian cancer
     Route: 042
     Dates: start: 20250905, end: 20250905
  2. SODIUM CHLORIDE [Concomitant]
     Active Substance: SODIUM CHLORIDE
     Dosage: USED AS SOLVENT
     Route: 042
     Dates: start: 20250905, end: 20250905
  3. CARBOPLATIN [Concomitant]
     Active Substance: CARBOPLATIN
     Route: 042
     Dates: start: 20250905, end: 20250905
  4. PACLITAXEL [Concomitant]
     Active Substance: PACLITAXEL
     Dosage: POWDER INJECTION
     Route: 042
     Dates: start: 20250905, end: 20250905

REACTIONS (2)
  - Myelosuppression [Recovering/Resolving]
  - Hypothyroidism [Recovering/Resolving]

NARRATIVE: CASE EVENT DATE: 20250925
